FAERS Safety Report 11848909 (Version 1)
Quarter: 2015Q4

REPORT INFORMATION
  Report Type: Spontaneous
  Country: US (occurrence: None)
  Receive Date: 20151217
  Receipt Date: 20151217
  Transmission Date: 20160305
  Serious: No
  Sender: FDA-Public Use
  Company Number: None

PATIENT
  Age: 56 Year
  Sex: Female

DRUGS (9)
  1. AFINITOR [Suspect]
     Active Substance: EVEROLIMUS
     Indication: NEOPLASM MALIGNANT
     Route: 048
     Dates: start: 20151120
  2. OCUTABS [Concomitant]
  3. CALCIUM [Concomitant]
     Active Substance: CALCIUM
  4. EXEMESTANE. [Concomitant]
     Active Substance: EXEMESTANE
  5. MAGNESIUM [Concomitant]
     Active Substance: MAGNESIUM
  6. VITAMIN D3 [Concomitant]
     Active Substance: CHOLECALCIFEROL
  7. FLAXSEED [Concomitant]
     Active Substance: FLAX SEED
  8. FOLIC ACID. [Concomitant]
     Active Substance: FOLIC ACID
  9. VITAMIN A [Concomitant]
     Active Substance: VITAMIN A

REACTIONS (8)
  - Acne [None]
  - Diarrhoea [None]
  - Impaired healing [None]
  - Nausea [None]
  - Dysgeusia [None]
  - Blood count abnormal [None]
  - Therapy cessation [None]
  - Muscle spasms [None]

NARRATIVE: CASE EVENT DATE: 20151120
